FAERS Safety Report 4562581-7 (Version None)
Quarter: 2005Q1

REPORT INFORMATION
  Report Type: 
  Country: None (occurrence: None)
  Receive Date: 20050124
  Receipt Date: 20050111
  Transmission Date: 20050727
  Serious: Yes (Hospitalization)
  Sender: FDA-Public Use
  Company Number: HQWYE445514JUN04

PATIENT
  Age: 46 Year
  Sex: Female
  Weight: 65.83 kg

DRUGS (1)
  1. PREMPRO [Suspect]
     Indication: MENOPAUSAL SYMPTOMS
     Dosage: ORAL
     Route: 048
     Dates: start: 20010801, end: 20020701

REACTIONS (16)
  - ATHEROSCLEROSIS [None]
  - CONDITION AGGRAVATED [None]
  - FEMORAL ARTERIAL STENOSIS [None]
  - FEMORAL ARTERY OCCLUSION [None]
  - GANGRENE [None]
  - GRAFT THROMBOSIS [None]
  - HYPERCOAGULATION [None]
  - INTERMITTENT CLAUDICATION [None]
  - ISCHAEMIC LIMB PAIN [None]
  - LEG AMPUTATION [None]
  - OSTEONECROSIS [None]
  - PERIPHERAL VASCULAR DISORDER [None]
  - POST PROCEDURAL OEDEMA [None]
  - POSTOPERATIVE INFECTION [None]
  - PROTHROMBIN TIME PROLONGED [None]
  - VENOUS OCCLUSION [None]
